FAERS Safety Report 16312867 (Version 1)
Quarter: 2019Q2

REPORT INFORMATION
  Report Type: Spontaneous
  Country: CN (occurrence: CN)
  Receive Date: 20190515
  Receipt Date: 20190515
  Transmission Date: 20190711
  Serious: Yes (Other)
  Sender: FDA-Public Use
  Company Number: PHHY2019CN109768

PATIENT
  Age: 64 Year
  Sex: Female

DRUGS (2)
  1. PAZOPANIB [Suspect]
     Active Substance: PAZOPANIB
     Dosage: 3 DF, UNK (600 MG)
     Route: 048
  2. PAZOPANIB [Suspect]
     Active Substance: PAZOPANIB
     Indication: RENAL CANCER
     Dosage: 4 DF, UNK  (800 MG)
     Route: 048
     Dates: start: 20180509

REACTIONS (6)
  - Diarrhoea [Not Recovered/Not Resolved]
  - Blood bilirubin increased [Unknown]
  - Weight decreased [Unknown]
  - Dyspepsia [Unknown]
  - Appetite disorder [Unknown]
  - Pancreatic atrophy [Unknown]

NARRATIVE: CASE EVENT DATE: 20190509
